FAERS Safety Report 7331127-2 (Version None)
Quarter: 2011Q1

REPORT INFORMATION
  Report Type: 
  Country: None (occurrence: None)
  Receive Date: 20110228
  Receipt Date: 20110228
  Transmission Date: 20110831
  Serious: Yes (Disabling)
  Sender: FDA-Public Use
  Company Number: None

PATIENT
  Age: 72 Year
  Sex: Female
  Weight: 48.5349 kg

DRUGS (1)
  1. ZOCOR [Suspect]
     Indication: BLOOD CHOLESTEROL INCREASED
     Dosage: ONE (40MG) AT NIGHT
     Dates: start: 20100226, end: 20100327

REACTIONS (2)
  - RHEUMATOID ARTHRITIS [None]
  - IMPAIRED SELF-CARE [None]
